FAERS Safety Report 10750739 (Version 2)
Quarter: 2015Q2

REPORT INFORMATION
  Report Type: Spontaneous
  Country: FR (occurrence: FR)
  Receive Date: 20150130
  Receipt Date: 20150402
  Transmission Date: 20150821
  Serious: Yes (Hospitalization)
  Sender: FDA-Public Use
  Company Number: FR-TEVA-536259ISR

PATIENT
  Age: 54 Year
  Sex: Female

DRUGS (1)
  1. COPAXONE [Suspect]
     Active Substance: GLATIRAMER ACETATE
     Dosage: 20 MILLIGRAM/MILLILITERS DAILY; COPAXONE 20 MG, FOR 10 YEARS
     Route: 058

REACTIONS (12)
  - Arthralgia [Unknown]
  - Uterine fibrosis [Unknown]
  - Chest discomfort [Unknown]
  - Paraesthesia [Unknown]
  - Weight increased [Unknown]
  - Hunger [Not Recovered/Not Resolved]
  - Amnesia [Unknown]
  - Sciatic nerve injury [Not Recovered/Not Resolved]
  - Chondropathy [Unknown]
  - Dizziness [Unknown]
  - Malaise [Unknown]
  - Stress cardiomyopathy [Unknown]

NARRATIVE: CASE EVENT DATE: 201308
